FAERS Safety Report 10890258 (Version 1)
Quarter: 2015Q1

REPORT INFORMATION
  Report Type: Spontaneous
  Country: US (occurrence: US)
  Receive Date: 20150305
  Receipt Date: 20150305
  Transmission Date: 20150721
  Serious: Yes (Other)
  Sender: FDA-Public Use
  Company Number: US-ROCHE-1547234

PATIENT
  Sex: Male
  Weight: 79.37 kg

DRUGS (4)
  1. PEGASYS [Suspect]
     Active Substance: PEGINTERFERON ALFA-2A
     Indication: PRODUCT USED FOR UNKNOWN INDICATION
     Route: 065
  2. RIBASPHERE RIBAPAK [Suspect]
     Active Substance: RIBAVIRIN
     Indication: PRODUCT USED FOR UNKNOWN INDICATION
     Route: 065
  3. RIBASPHERE [Suspect]
     Active Substance: RIBAVIRIN
     Indication: PRODUCT USED FOR UNKNOWN INDICATION
     Route: 065
  4. SOVALDI [Suspect]
     Active Substance: SOFOSBUVIR
     Indication: PRODUCT USED FOR UNKNOWN INDICATION
     Route: 065

REACTIONS (17)
  - Anxiety [Unknown]
  - Depression [Unknown]
  - Abdominal pain [Unknown]
  - Hyperhidrosis [Unknown]
  - Gastroenteritis viral [Unknown]
  - Hypertension [Unknown]
  - Diarrhoea [Unknown]
  - Seizure [Unknown]
  - Feeling abnormal [Unknown]
  - Sleep apnoea syndrome [Unknown]
  - Coronary artery disease [Unknown]
  - Nausea [Unknown]
  - Abdominal pain upper [Unknown]
  - Dyspnoea [Unknown]
  - Fatigue [Unknown]
  - Early satiety [Unknown]
  - Myalgia [Unknown]
